FAERS Safety Report 10305955 (Version 1)
Quarter: 2014Q3

REPORT INFORMATION
  Report Type: Spontaneous
  Country: GB (occurrence: GB)
  Receive Date: 20140715
  Receipt Date: 20140715
  Transmission Date: 20150326
  Serious: Yes (Life-Threatening, Hospitalization, Other)
  Sender: FDA-Public Use
  Company Number: GB-TEVA-493442ISR

PATIENT
  Sex: Female

DRUGS (2)
  1. WARFARIN [Interacting]
     Active Substance: WARFARIN
  2. TRIMETHOPRIM. [Suspect]
     Active Substance: TRIMETHOPRIM
     Dosage: 400 MILLIGRAM DAILY;
     Route: 048
     Dates: start: 20140618

REACTIONS (2)
  - Drug interaction [Unknown]
  - Coagulation time prolonged [Not Recovered/Not Resolved]

NARRATIVE: CASE EVENT DATE: 20140624
